FAERS Safety Report 12285558 (Version 1)
Quarter: 2016Q2

REPORT INFORMATION
  Report Type: Spontaneous
  Country: DE (occurrence: DE)
  Receive Date: 20160420
  Receipt Date: 20160420
  Transmission Date: 20160815
  Serious: Yes (Congenital Anomaly)
  Sender: FDA-Public Use
  Company Number: GXKR2016DE001827

PATIENT
  Age: 1 Day
  Sex: Male

DRUGS (3)
  1. FOLIC ACID. [Concomitant]
     Active Substance: FOLIC ACID
     Indication: PROPHYLAXIS OF NEURAL TUBE DEFECT
     Dosage: 0.4 MG, QD
     Route: 064
     Dates: start: 20140314, end: 20141121
  2. ACETAMINOPHEN. [Suspect]
     Active Substance: ACETAMINOPHEN
     Dosage: 1000 MG, QD
     Route: 064
  3. ACETAMINOPHEN. [Suspect]
     Active Substance: ACETAMINOPHEN
     Indication: TOOTHACHE
     Dosage: 500 MG, UNK, WITH MAXIMUM DOSE 1000 MG DAILY
     Route: 064

REACTIONS (2)
  - Cryptorchism [Recovered/Resolved with Sequelae]
  - Large for dates baby [Unknown]

NARRATIVE: CASE EVENT DATE: 20141121
